FAERS Safety Report 6572378-4 (Version None)
Quarter: 2010Q1

REPORT INFORMATION
  Report Type: 
  Country: None (occurrence: None)
  Receive Date: 20100205
  Receipt Date: 20100202
  Transmission Date: 20100710
  Serious: Yes (Other)
  Sender: FDA-Public Use
  Company Number: US-BRISTOL-MYERS SQUIBB COMPANY-14877955

PATIENT
  Age: 19 Month
  Sex: Female
  Weight: 10 kg

DRUGS (4)
  1. ATAZANAVIR [Suspect]
     Indication: HIV INFECTION
     Dosage: INTERRUPTED ON 27OCT09 RESUMED ON 09-NOV-2009
     Route: 048
     Dates: start: 20080729
  2. RITONAVIR [Suspect]
     Indication: HIV INFECTION
     Dosage: INTERRUPTED ON 27OCT09, RESUMED ON 09-NOV-2009
     Route: 048
     Dates: start: 20080729
  3. EPIVIR [Suspect]
     Dosage: 15MONTHS;40MG.
     Route: 048
     Dates: start: 20080729
  4. ZIDOVUDINE [Suspect]
     Dosage: 15MONTHS;120MG.
     Route: 048
     Dates: start: 20080729

REACTIONS (1)
  - BLOOD ALKALINE PHOSPHATASE INCREASED [None]
